FAERS Safety Report 20011801 (Version 1)
Quarter: 2021Q4

REPORT INFORMATION
  Report Type: Spontaneous
  Country: US (occurrence: US)
  Receive Date: 20211029
  Receipt Date: 20211029
  Transmission Date: 20220303
  Serious: No
  Sender: FDA-Public Use
  Company Number: US-ELI_LILLY_AND_COMPANY-US202110007585

PATIENT
  Sex: Female

DRUGS (2)
  1. BAMLANIVIMAB [Suspect]
     Active Substance: BAMLANIVIMAB
     Indication: COVID-19
     Dosage: UNK, SINGLE
     Route: 042
  2. SODIUM CHLORIDE [Concomitant]
     Active Substance: SODIUM CHLORIDE
     Indication: Medication dilution
     Dosage: UNK, UNKNOWN
     Route: 065

REACTIONS (6)
  - Nausea [Unknown]
  - Anxiety [Unknown]
  - Asthenia [Unknown]
  - Cyanosis [Unknown]
  - Hyperhidrosis [Unknown]
  - Off label use [Unknown]
